FAERS Safety Report 12447010 (Version 1)
Quarter: 2016Q2

REPORT INFORMATION
  Report Type: Report from Study
  Country: AR (occurrence: AR)
  Receive Date: 20160608
  Receipt Date: 20160608
  Transmission Date: 20160815
  Serious: Yes (Death)
  Sender: FDA-Public Use
  Company Number: PHHY2016AR078254

PATIENT
  Sex: Male

DRUGS (1)
  1. ULTIBRO BREEZHALER [Suspect]
     Active Substance: GLYCOPYRRONIUM\INDACATEROL
     Indication: CHRONIC OBSTRUCTIVE PULMONARY DISEASE
     Dosage: 1 DF, QD (STARTED ONE MONTH AND A HALF AGO)
     Route: 065

REACTIONS (4)
  - Lung neoplasm malignant [Fatal]
  - Thrombosis [Fatal]
  - Nosocomial infection [Fatal]
  - Immune system disorder [Fatal]
